FAERS Safety Report 24911037 (Version 1)
Quarter: 2025Q1

REPORT INFORMATION
  Report Type: Report from Study
  Country: US (occurrence: US)
  Receive Date: 20250131
  Receipt Date: 20250131
  Transmission Date: 20250409
  Serious: Yes (Hospitalization)
  Sender: ALEXION PHARMACEUTICALS
  Company Number: US-AstraZeneca-CH-00796859A

PATIENT

DRUGS (1)
  1. OSIMERTINIB [Suspect]
     Active Substance: OSIMERTINIB
     Indication: Lung carcinoma cell type unspecified stage 0

REACTIONS (4)
  - Wrist fracture [Recovering/Resolving]
  - Wound [Recovering/Resolving]
  - Skin wound [Recovering/Resolving]
  - Product dose omission issue [Unknown]
